FAERS Safety Report 6783497-1 (Version None)
Quarter: 2010Q2

REPORT INFORMATION
  Report Type: 
  Country: None (occurrence: None)
  Receive Date: 20100622
  Receipt Date: 20100608
  Transmission Date: 20101027
  Serious: Yes (Hospitalization, Other)
  Sender: FDA-Public Use
  Company Number: PHHY2010FR38025

PATIENT
  Sex: Female

DRUGS (1)
  1. CGP 57148B T35717+ [Suspect]
     Indication: CHRONIC MYELOID LEUKAEMIA

REACTIONS (5)
  - APHASIA [None]
  - ARTERIOSCLEROSIS [None]
  - DYSARTHRIA [None]
  - HEADACHE [None]
  - TRANSIENT ISCHAEMIC ATTACK [None]
